FAERS Safety Report 9175331 (Version 1)
Quarter: 2013Q1

REPORT INFORMATION
  Report Type: Spontaneous
  Country: US (occurrence: US)
  Receive Date: 20130320
  Receipt Date: 20130320
  Transmission Date: 20140127
  Serious: Yes (Other)
  Sender: FDA-Public Use
  Company Number: US-ROCHE-1202346

PATIENT
  Age: 47 Year
  Sex: Male
  Weight: 114.86 kg

DRUGS (2)
  1. XOLAIR [Suspect]
     Indication: ASTHMA
     Route: 058
     Dates: start: 20130201, end: 20130301
  2. PREDNISONE [Concomitant]

REACTIONS (2)
  - Oedema peripheral [Not Recovered/Not Resolved]
  - Abdominal distension [Not Recovered/Not Resolved]
